FAERS Safety Report 24622669 (Version 1)
Quarter: 2024Q4

REPORT INFORMATION
  Report Type: Spontaneous
  Country: US (occurrence: US)
  Receive Date: 20241115
  Receipt Date: 20241115
  Transmission Date: 20250114
  Serious: No
  Sender: STALLERGENES
  Company Number: US-STALCOR-2024-AER-01975

PATIENT
  Age: 8 Year

DRUGS (2)
  1. PALFORZIA [Suspect]
     Active Substance: PEANUT
     Indication: Food allergy
     Dosage: LAST DOSE PRIOR TO EVENT (160 MG)
     Route: 048
     Dates: start: 20240903, end: 20240903
  2. PALFORZIA [Suspect]
     Active Substance: PEANUT
     Dosage: DOSE REDUCED
     Route: 048
     Dates: start: 20240820

REACTIONS (1)
  - Nasal discomfort [Recovered/Resolved]

NARRATIVE: CASE EVENT DATE: 20240903
